FAERS Safety Report 23602892 (Version 1)
Quarter: 2024Q1

REPORT INFORMATION
  Report Type: Spontaneous
  Country: US (occurrence: US)
  Receive Date: 20240306
  Receipt Date: 20240306
  Transmission Date: 20240409
  Serious: No
  Sender: FDA-Public Use
  Company Number: US-ELI_LILLY_AND_COMPANY-US202403001327

PATIENT
  Age: 64 Year
  Sex: Female

DRUGS (1)
  1. TALTZ [Suspect]
     Active Substance: IXEKIZUMAB
     Indication: Ankylosing spondylitis
     Dosage: 80 MG, OTHER (EVERY 4 WEEKS)
     Route: 058

REACTIONS (4)
  - Taste disorder [Unknown]
  - Injection site urticaria [Recovered/Resolved]
  - Injection site bruising [Recovered/Resolved]
  - Injection site pruritus [Recovered/Resolved]
